FAERS Safety Report 18258543 (Version 1)
Quarter: 2020Q3

REPORT INFORMATION
  Report Type: Report from Study
  Country: US (occurrence: US)
  Receive Date: 20200911
  Receipt Date: 20200911
  Transmission Date: 20201103
  Serious: No
  Sender: FDA-Public Use
  Company Number: US-BIOVITRUM-2020US3032

PATIENT
  Age: 35 Year
  Sex: Female

DRUGS (8)
  1. VIAGRA [Concomitant]
     Active Substance: SILDENAFIL CITRATE
  2. TOPIRAMATE. [Concomitant]
     Active Substance: TOPIRAMATE
  3. MODAFINIL. [Concomitant]
     Active Substance: MODAFINIL
  4. LEXAPRO [Concomitant]
     Active Substance: ESCITALOPRAM OXALATE
  5. CLONAZEPAM. [Concomitant]
     Active Substance: CLONAZEPAM
  6. RITALIN [Concomitant]
     Active Substance: METHYLPHENIDATE HYDROCHLORIDE
  7. COLCHICINE. [Concomitant]
     Active Substance: COLCHICINE
  8. KINERET [Suspect]
     Active Substance: ANAKINRA
     Indication: CRYOPYRIN ASSOCIATED PERIODIC SYNDROME
     Route: 058
     Dates: start: 20200602

REACTIONS (13)
  - Injection site reaction [Unknown]
  - Injection site pruritus [Recovering/Resolving]
  - Dysgeusia [Unknown]
  - Nausea [Unknown]
  - Injection site urticaria [Recovering/Resolving]
  - Adverse reaction [Unknown]
  - Injection site haemorrhage [Unknown]
  - Injection site pain [Unknown]
  - Injection site rash [Recovering/Resolving]
  - Off label use [Recovered/Resolved]
  - Fatigue [Unknown]
  - Injection site vesicles [Unknown]
  - Injection site bruising [Recovering/Resolving]

NARRATIVE: CASE EVENT DATE: 20200602
